FAERS Safety Report 18007203 (Version 1)
Quarter: 2020Q3

REPORT INFORMATION
  Report Type: Spontaneous
  Country: US (occurrence: US)
  Receive Date: 20200710
  Receipt Date: 20200710
  Transmission Date: 20201103
  Serious: No
  Sender: FDA-Public Use
  Company Number: None

PATIENT
  Age: 26 Year
  Sex: Female
  Weight: 78.9 kg

DRUGS (2)
  1. ENCORAFENIB [Suspect]
     Active Substance: ENCORAFENIB
     Route: 048
     Dates: end: 20200601
  2. BINIMETINIB [Suspect]
     Active Substance: BINIMETINIB
     Route: 048
     Dates: end: 20200602

REACTIONS (3)
  - Clinical trial participant [None]
  - Retinal anomaly congenital [None]
  - Retinal artery occlusion [None]

NARRATIVE: CASE EVENT DATE: 20200519
